FAERS Safety Report 10965825 (Version 2)
Quarter: 2015Q2

REPORT INFORMATION
  Report Type: Spontaneous
  Country: JP (occurrence: JP)
  Receive Date: 20150330
  Receipt Date: 20150603
  Transmission Date: 20150821
  Serious: Yes (Death, Other)
  Sender: FDA-Public Use
  Company Number: JP-TEVA-551291ISR

PATIENT
  Age: 83 Year
  Sex: Female
  Weight: 45 kg

DRUGS (12)
  1. E-FEN BUCCAL [Suspect]
     Active Substance: FENTANYL CITRATE
     Dosage: 50 MICROGRAM DAILY;
     Route: 002
     Dates: start: 20140319, end: 20140416
  2. E-FEN BUCCAL [Suspect]
     Active Substance: FENTANYL CITRATE
     Dosage: 100 MICROGRAM DAILY;
     Route: 002
     Dates: start: 20140424, end: 20140506
  3. FENTANYL CITRATE. [Concomitant]
     Active Substance: FENTANYL CITRATE
     Dosage: 3 MILLIGRAM DAILY;
     Route: 062
     Dates: start: 20140320, end: 20140327
  4. FENTANYL CITRATE. [Concomitant]
     Active Substance: FENTANYL CITRATE
     Dosage: 4 MILLIGRAM DAILY;
     Route: 062
     Dates: start: 20141003, end: 20150103
  5. MORPHINE HYDROCHLORIDE HYDRATE [Concomitant]
     Active Substance: MORPHINE HYDROCHLORIDE
     Indication: CANCER PAIN
     Dosage: 10 MILLIGRAM DAILY;
     Route: 048
     Dates: start: 20141216, end: 20150104
  6. FENTANYL CITRATE. [Concomitant]
     Active Substance: FENTANYL CITRATE
     Dosage: 4 MILLIGRAM DAILY;
     Route: 062
     Dates: start: 20140328, end: 20140416
  7. FENTANYL CITRATE. [Concomitant]
     Active Substance: FENTANYL CITRATE
     Dosage: 3 MILLIGRAM DAILY;
     Route: 062
     Dates: start: 20140417, end: 20141002
  8. FENTANYL CITRATE. [Concomitant]
     Active Substance: FENTANYL CITRATE
     Indication: CANCER PAIN
     Dosage: 2 MILLIGRAM DAILY;
     Route: 062
     Dates: start: 20140311, end: 20140319
  9. E-FEN BUCCAL [Suspect]
     Active Substance: FENTANYL CITRATE
     Dosage: 100 - 200 MICROGRAM DAILY
     Route: 002
     Dates: start: 20140417, end: 20140423
  10. OXIFAST [Concomitant]
     Active Substance: OXYCODONE
     Indication: CANCER PAIN
     Dosage: 19.2 MILLIGRAM DAILY;
     Route: 042
     Dates: start: 20150106, end: 20150112
  11. FENTANYL. [Concomitant]
     Active Substance: FENTANYL
     Indication: CANCER PAIN
     Route: 062
     Dates: start: 20140206, end: 20140311
  12. E-FEN BUCCAL [Suspect]
     Active Substance: FENTANYL CITRATE
     Indication: BREAKTHROUGH PAIN
     Dosage: 100 - 150 MICROGRAM DAILY
     Route: 002
     Dates: start: 20140306, end: 20140318

REACTIONS (3)
  - Leiomyosarcoma [Fatal]
  - Pruritus [Recovered/Resolved]
  - Somnolence [Not Recovered/Not Resolved]

NARRATIVE: CASE EVENT DATE: 20140306
